FAERS Safety Report 6119625-0 (Version None)
Quarter: 2009Q1

REPORT INFORMATION
  Report Type: 
  Country: None (occurrence: None)
  Receive Date: 20090316
  Receipt Date: 20090306
  Transmission Date: 20090719
  Serious: Yes (Hospitalization, Other)
  Sender: FDA-Public Use
  Company Number: US-BIOGENIDEC-2009BI005848

PATIENT
  Age: 56 Year
  Sex: Female
  Weight: 104 kg

DRUGS (4)
  1. AVONEX [Suspect]
     Indication: MULTIPLE SCLEROSIS
     Route: 030
     Dates: start: 20010101, end: 20030101
  2. AVONEX [Suspect]
     Route: 030
     Dates: start: 20030101, end: 20080101
  3. AVONEX [Suspect]
     Route: 030
     Dates: start: 20080101, end: 20080101
  4. AVONEX [Suspect]
     Route: 030
     Dates: start: 20080101

REACTIONS (9)
  - ALVEOLITIS ALLERGIC [None]
  - ANGINA PECTORIS [None]
  - CELLULITIS [None]
  - CORONARY ARTERY STENOSIS [None]
  - INFLUENZA LIKE ILLNESS [None]
  - ORGANISING PNEUMONIA [None]
  - OXYGEN SATURATION DECREASED [None]
  - POST PROCEDURAL HAEMORRHAGE [None]
  - WEIGHT INCREASED [None]
